FAERS Safety Report 24588924 (Version 1)
Quarter: 2024Q4

REPORT INFORMATION
  Report Type: Spontaneous
  Country: AT (occurrence: AT)
  Receive Date: 20241107
  Receipt Date: 20241107
  Transmission Date: 20250115
  Serious: Yes (Death)
  Sender: PFIZER
  Company Number: AT-PFIZER INC-PV202400143653

PATIENT
  Sex: Male

DRUGS (1)
  1. TALAZOPARIB [Suspect]
     Active Substance: TALAZOPARIB
     Indication: Prostate cancer
     Dosage: TREATMENT CHANGE TO TALAZOPARIB, 1 MG 1-0-0
     Dates: end: 202110

REACTIONS (5)
  - Death [Fatal]
  - Anaemia [Unknown]
  - General physical health deterioration [Unknown]
  - Neoplasm progression [Unknown]
  - Off label use [Unknown]

NARRATIVE: CASE EVENT DATE: 20210101
